FAERS Safety Report 15750399 (Version 2)
Quarter: 2018Q4

REPORT INFORMATION
  Report Type: Spontaneous
  Country: FR (occurrence: FR)
  Receive Date: 20181221
  Receipt Date: 20181228
  Transmission Date: 20190205
  Serious: Yes (Hospitalization, Congenital Anomaly, Other)
  Sender: FDA-Public Use
  Company Number: FR-UCBSA-2018054987

PATIENT
  Sex: Male
  Weight: 2.78 kg

DRUGS (3)
  1. COCAINE [Suspect]
     Active Substance: COCAINE
     Indication: PRODUCT USED FOR UNKNOWN INDICATION
     Dosage: UNKNOWN DOSE
     Route: 064
  2. LACOSAMIDE. [Suspect]
     Active Substance: LACOSAMIDE
     Indication: EPILEPSY
     Dosage: UNKNOWN DOSE
     Route: 064
  3. LAMOTRIGINE. [Suspect]
     Active Substance: LAMOTRIGINE
     Indication: EPILEPSY
     Dosage: UNKNOWN DOSE
     Route: 064

REACTIONS (14)
  - Toxicity to various agents [Recovered/Resolved]
  - Pleural effusion [Recovered/Resolved]
  - Oedema [Recovered/Resolved]
  - Ischaemia [Recovered/Resolved]
  - Hydrops foetalis [Recovered/Resolved]
  - Lymphoedema [Recovered/Resolved]
  - Ascites [Recovered/Resolved]
  - Hypoplastic left heart syndrome [Recovered/Resolved]
  - Coarctation of the aorta [Recovered/Resolved]
  - Congenital aortic stenosis [Recovered/Resolved]
  - Foetal exposure during pregnancy [Unknown]
  - Growth retardation [Recovered/Resolved]
  - Congenital aortic atresia [Recovered/Resolved]
  - Foetal alcohol syndrome [Recovered/Resolved]
